FAERS Safety Report 14786844 (Version 1)
Quarter: 2018Q2

REPORT INFORMATION
  Report Type: Spontaneous
  Country: US (occurrence: US)
  Receive Date: 20180420
  Receipt Date: 20180420
  Transmission Date: 20180711
  Serious: Yes (Other)
  Sender: FDA-Public Use
  Company Number: PHEH2018US014818

PATIENT
  Sex: Female

DRUGS (20)
  1. ILARIS [Suspect]
     Active Substance: CANAKINUMAB
     Indication: STILL^S DISEASE
     Dosage: 4 MG/KG, Q4W
     Route: 065
  2. ILARIS [Suspect]
     Active Substance: CANAKINUMAB
     Dosage: 6 MG/KG, Q4W
     Route: 065
  3. ANAKINRA [Suspect]
     Active Substance: ANAKINRA
     Dosage: 40 MG, QD
     Route: 065
  4. PREDNISOLON [Concomitant]
     Active Substance: PREDNISOLONE
     Dosage: 9 MG, QD
     Route: 048
  5. PREDNISOLON [Concomitant]
     Active Substance: PREDNISOLONE
     Dosage: 10 MG, QD
     Route: 048
  6. TACROLIMUS. [Concomitant]
     Active Substance: TACROLIMUS
     Indication: PRODUCT USED FOR UNKNOWN INDICATION
     Dosage: UNK
     Route: 065
  7. ILARIS [Suspect]
     Active Substance: CANAKINUMAB
     Dosage: 80 MG, Q3W
     Route: 065
  8. TOCILIZUMAB. [Suspect]
     Active Substance: TOCILIZUMAB
     Indication: PRODUCT USED FOR UNKNOWN INDICATION
     Dosage: UNK
     Route: 065
  9. ANAKINRA [Suspect]
     Active Substance: ANAKINRA
     Indication: PRODUCT USED FOR UNKNOWN INDICATION
     Dosage: 20 MG, QD
     Route: 065
     Dates: start: 2013
  10. METHOTREXATE. [Concomitant]
     Active Substance: METHOTREXATE
     Indication: PRODUCT USED FOR UNKNOWN INDICATION
     Dosage: UNK
     Route: 065
  11. PREDNISONE. [Concomitant]
     Active Substance: PREDNISONE
     Indication: PRODUCT USED FOR UNKNOWN INDICATION
     Dosage: 3 MG, QD
     Route: 048
  12. DEXAMETHASONE. [Concomitant]
     Active Substance: DEXAMETHASONE
     Indication: PRODUCT USED FOR UNKNOWN INDICATION
     Dosage: 18 MG, QD
     Route: 065
  13. ILARIS [Suspect]
     Active Substance: CANAKINUMAB
     Dosage: 60 MG, Q3W
     Route: 065
  14. PREDNISOLON [Concomitant]
     Active Substance: PREDNISOLONE
     Indication: PRODUCT USED FOR UNKNOWN INDICATION
     Dosage: 10.5 MG, QD
     Route: 048
  15. PREDNISOLON [Concomitant]
     Active Substance: PREDNISOLONE
     Dosage: 6 MG, QD
     Route: 048
  16. IRON POLYMALETHER [Concomitant]
     Dosage: 12 MG/KG, Q2W
     Route: 065
  17. IRON POLYMALETHER [Concomitant]
     Indication: PRODUCT USED FOR UNKNOWN INDICATION
     Dosage: 60 MG, Q4W
     Route: 065
  18. PREDNISOLON [Concomitant]
     Active Substance: PREDNISOLONE
     Dosage: 18 MG, QD
     Route: 048
  19. ILARIS [Suspect]
     Active Substance: CANAKINUMAB
     Dosage: 40 MG, Q4W
     Route: 065
  20. PREDNISONE. [Concomitant]
     Active Substance: PREDNISONE
     Dosage: 2.25 MG, QD
     Route: 048

REACTIONS (12)
  - Interstitial lung disease [Unknown]
  - Clubbing [Unknown]
  - Rash erythematous [Unknown]
  - Microcytic anaemia [Unknown]
  - Hepatitis [Unknown]
  - Lymphadenopathy [Unknown]
  - Arthritis [Unknown]
  - Histiocytosis haematophagic [Unknown]
  - Rash [Unknown]
  - Tachycardia [Unknown]
  - Pyrexia [Unknown]
  - Respiratory disorder [Unknown]
